FAERS Safety Report 4899332-2 (Version None)
Quarter: 2006Q1

REPORT INFORMATION
  Report Type: 
  Country: None (occurrence: None)
  Receive Date: 20060131
  Receipt Date: 20060118
  Transmission Date: 20060701
  Serious: Yes (Death)
  Sender: FDA-Public Use
  Company Number: 2005172356

PATIENT
  Age: 74 Year
  Sex: Male

DRUGS (9)
  1. CLINDAMYCIN PHOSPHATE [Suspect]
     Indication: PNEUMONIA
     Dosage: 600 MG, INTRAVENOUS
     Route: 042
     Dates: start: 20050909, end: 20051213
  2. VFEND (FORICONAZOLE) [Suspect]
     Indication: PNEUMONIA
     Dosage: SEE IMAGE
     Route: 042
     Dates: start: 20051209, end: 20051209
  3. WARFARIN SODIUM [Suspect]
     Indication: CEREBRAL ARTERY EMBOLISM
     Dosage: 2 GRAM, ORAL
     Route: 048
     Dates: start: 20031006, end: 20051213
  4. ALL OTHER THERAPEUTIC PRODUCTS (ALL OTHER THERAPEUTIC PRODUCTS) [Suspect]
     Indication: PNEUMONIA
     Dosage: 0.3 GRAM, INTRAVENOUS
     Route: 042
     Dates: start: 20051209, end: 20051213
  5. BROACT (CEFPIRONE SULFATE) [Suspect]
     Indication: PNEUMONIA
     Dosage: 2 GRAM, INTRAVENOUS
     Route: 042
     Dates: start: 20051206, end: 20051208
  6. EXACIN (ISEPAMICIN SULFATE) [Suspect]
     Indication: PNEUMONIA
     Dosage: 400 MG, INTRAMUSCULAR
     Route: 030
     Dates: start: 20051209, end: 20051209
  7. GLUCOSE (GLUCOSE) [Concomitant]
  8. SOLITA T (ELECTOLYTES NOS) [Concomitant]
  9. EXCEGRAN (ZONISAMIDE) [Concomitant]

REACTIONS (7)
  - CONDITION AGGRAVATED [None]
  - CONVULSION [None]
  - DEPRESSED LEVEL OF CONSCIOUSNESS [None]
  - HAEMOPTYSIS [None]
  - PNEUMONIA ASPIRATION [None]
  - PULMONARY HAEMORRHAGE [None]
  - RESPIRATORY FAILURE [None]
